FAERS Safety Report 7688597-X (Version None)
Quarter: 2011Q3

REPORT INFORMATION
  Report Type: 
  Country: None (occurrence: None)
  Receive Date: 20110817
  Receipt Date: 20110802
  Transmission Date: 20111222
  Serious: Yes (Death, Other)
  Sender: FDA-Public Use
  Company Number: LT-BAYER-2011-069056

PATIENT
  Age: 60 Year
  Sex: Male

DRUGS (2)
  1. DOXORUBICIN HCL [Concomitant]
     Indication: HEPATIC NEOPLASM MALIGNANT
     Dosage: 60 MG/M2, Q3WK
     Dates: start: 20061030, end: 20061201
  2. NEXAVAR [Suspect]
     Indication: HEPATIC NEOPLASM MALIGNANT
     Dosage: 400 MG, BID
     Route: 048
     Dates: start: 20061030

REACTIONS (6)
  - AGRANULOCYTOSIS [None]
  - ALPHA 1 FOETOPROTEIN INCREASED [None]
  - PYREXIA [None]
  - COMA HEPATIC [None]
  - HEPATIC ENCEPHALOPATHY [None]
  - OESOPHAGEAL VARICES HAEMORRHAGE [None]
